FAERS Safety Report 7949994-8 (Version None)
Quarter: 2011Q4

REPORT INFORMATION
  Report Type: 
  Country: None (occurrence: None)
  Receive Date: 20111130
  Receipt Date: 20111124
  Transmission Date: 20120403
  Serious: Yes (Death)
  Sender: FDA-Public Use
  Company Number: JP-BRISTOL-MYERS SQUIBB COMPANY-16242620

PATIENT
  Age: 80 Year
  Sex: Male

DRUGS (4)
  1. IRINOTECAN HCL [Concomitant]
     Indication: COLORECTAL CANCER RECURRENT
     Route: 042
  2. FOLINATE [Concomitant]
     Indication: COLORECTAL CANCER RECURRENT
     Route: 042
  3. FLUOROURACIL [Concomitant]
     Indication: COLORECTAL CANCER RECURRENT
     Dosage: IV DRIP
     Route: 040
  4. ERBITUX [Suspect]
     Indication: COLORECTAL CANCER
     Dosage: INF.
     Route: 042
     Dates: start: 20110701, end: 20111028

REACTIONS (1)
  - CARDIAC FAILURE [None]
